FAERS Safety Report 8523982 (Version 4)
Quarter: 2014Q3

REPORT INFORMATION
  Report Type: Spontaneous
  Country: US (occurrence: None)
  Receive Date: 20120413
  Receipt Date: 20140825
  Transmission Date: 20150326
  Serious: Yes (Hospitalization, Other)
  Sender: FDA-Public Use
  Company Number: ADR-2006-3275

PATIENT
  Age: 48 Year
  Sex: Female

DRUGS (10)
  1. CEFTRIAXONE. [Suspect]
     Active Substance: CEFTRIAXONE
  2. KLONOPIN [Suspect]
     Active Substance: CLONAZEPAM
  3. AMITRIPTYLINE [Suspect]
     Active Substance: AMITRIPTYLINE
  4. TOPROL XL [Suspect]
     Active Substance: METOPROLOL SUCCINATE
  5. ORAL BACLOFEN [Suspect]
     Active Substance: BACLOFEN
     Indication: MUSCLE SPASTICITY
  6. VANCOMYCIN [Suspect]
     Active Substance: VANCOMYCIN
  7. NEURONTIN [Suspect]
     Active Substance: GABAPENTIN
  8. SYNTHROID [Suspect]
     Active Substance: LEVOTHYROXINE SODIUM
  9. COPAXONE [Suspect]
     Active Substance: GLATIRAMER ACETATE
  10. LIORESAL [Suspect]
     Active Substance: BACLOFEN
     Indication: MUSCLE SPASTICITY
     Dosage: 500 MCG, DAILY, INTRATH
     Route: 037

REACTIONS (28)
  - CSF test abnormal [None]
  - Fall [None]
  - Muscle spasticity [None]
  - Withdrawal syndrome [None]
  - Pyrexia [None]
  - CSF glucose abnormal [None]
  - CSF white blood cell count increased [None]
  - Muscle spasms [None]
  - CSF cell count increased [None]
  - Gait disturbance [None]
  - Drug hypersensitivity [None]
  - CSF protein abnormal [None]
  - Inflammation [None]
  - Nausea [None]
  - Drug withdrawal syndrome [None]
  - Allergy to chemicals [None]
  - Headache [None]
  - Drug effect decreased [None]
  - Chills [None]
  - Cold sweat [None]
  - Joint stiffness [None]
  - Unevaluable event [None]
  - Decreased appetite [None]
  - Meningitis [None]
  - Photosensitivity reaction [None]
  - Musculoskeletal stiffness [None]
  - Asthenia [None]
  - Hyperhidrosis [None]

NARRATIVE: CASE EVENT DATE: 20060927
